FAERS Safety Report 18545774 (Version 3)
Quarter: 2020Q4

REPORT INFORMATION
  Report Type: Spontaneous
  Country: CA (occurrence: CA)
  Receive Date: 20201125
  Receipt Date: 20201230
  Transmission Date: 20210114
  Serious: Yes (Other)
  Sender: FDA-Public Use
  Company Number: CA-JNJFOC-20201133454

PATIENT
  Age: 58 Year
  Sex: Male

DRUGS (15)
  1. INTELENCE [Interacting]
     Active Substance: ETRAVIRINE
     Route: 065
  2. LEUPROLIDE ACETATE. [Interacting]
     Active Substance: LEUPROLIDE ACETATE
     Indication: PROSTATE CANCER
     Route: 065
  3. RITONAVIR. [Interacting]
     Active Substance: RITONAVIR
     Route: 065
  4. LEUPROLIDE ACETATE. [Interacting]
     Active Substance: LEUPROLIDE ACETATE
     Indication: METASTASES TO BONE
     Route: 065
  5. EMTRICITABINE;TENOFOVIR ALAFENAMIDE FUMARATE [Concomitant]
     Indication: HIV INFECTION
  6. BICALUTAMIDE. [Interacting]
     Active Substance: BICALUTAMIDE
     Indication: PROSTATE CANCER
     Route: 065
  7. BICALUTAMIDE. [Interacting]
     Active Substance: BICALUTAMIDE
     Route: 065
  8. ENZALUTAMIDE [Interacting]
     Active Substance: ENZALUTAMIDE
     Indication: PROSTATE CANCER
     Route: 065
  9. BICALUTAMIDE. [Interacting]
     Active Substance: BICALUTAMIDE
     Indication: METASTASES TO BONE
     Route: 065
  10. RITONAVIR. [Interacting]
     Active Substance: RITONAVIR
     Indication: HIV INFECTION
     Route: 065
  11. INTELENCE [Suspect]
     Active Substance: ETRAVIRINE
     Indication: HIV INFECTION
     Route: 048
  12. DARUNAVIR [Interacting]
     Active Substance: DARUNAVIR
     Indication: HIV INFECTION
     Route: 048
  13. DOLUTEGRAVIR [Interacting]
     Active Substance: DOLUTEGRAVIR
     Indication: HIV INFECTION
     Route: 065
  14. RALTEGRAVIR. [Concomitant]
     Active Substance: RALTEGRAVIR
     Indication: HIV INFECTION
     Route: 065
  15. BICALUTAMIDE. [Interacting]
     Active Substance: BICALUTAMIDE
     Route: 065

REACTIONS (4)
  - Drug level decreased [Unknown]
  - Prostate cancer [Unknown]
  - Drug ineffective [Unknown]
  - Drug interaction [Unknown]
